FAERS Safety Report 12518816 (Version 2)
Quarter: 2016Q3

REPORT INFORMATION
  Report Type: Spontaneous
  Country: JP (occurrence: JP)
  Receive Date: 20160630
  Receipt Date: 20160701
  Transmission Date: 20161109
  Serious: No
  Sender: FDA-Public Use
  Company Number: GXJP2016JP001033

PATIENT
  Age: 82 Year
  Sex: Female

DRUGS (1)
  1. LEVOFLOXACIN TABLET [Suspect]
     Active Substance: LEVOFLOXACIN
     Indication: CYSTITIS
     Dosage: 500 MG, QD
     Route: 048
     Dates: start: 20160620

REACTIONS (2)
  - Hypoaesthesia [Recovered/Resolved]
  - Blood pressure increased [Recovered/Resolved]

NARRATIVE: CASE EVENT DATE: 20160620
